FAERS Safety Report 19359909 (Version 2)
Quarter: 2021Q3

REPORT INFORMATION
  Report Type: Spontaneous
  Country: RU (occurrence: RU)
  Receive Date: 20210601
  Receipt Date: 20210705
  Transmission Date: 20211014
  Serious: Yes (Other)
  Sender: FDA-Public Use
  Company Number: RU-TEVA-2021-RU-1918845

PATIENT
  Age: 57 Year
  Sex: Female

DRUGS (2)
  1. AJOVY [Suspect]
     Active Substance: FREMANEZUMAB-VFRM
     Indication: PRODUCT USED FOR UNKNOWN INDICATION
     Route: 065
  2. MILDONIUM [Concomitant]

REACTIONS (2)
  - Headache [Unknown]
  - Suicidal ideation [Recovering/Resolving]
